FAERS Safety Report 25555010 (Version 1)
Quarter: 2025Q3

REPORT INFORMATION
  Report Type: Spontaneous
  Country: US (occurrence: None)
  Receive Date: 20250714
  Receipt Date: 20250714
  Transmission Date: 20251021
  Serious: Yes (Other)
  Sender: FDA-CTU
  Company Number: None

PATIENT
  Age: 66 Year
  Sex: Male

DRUGS (2)
  1. YESINTEK [Suspect]
     Active Substance: USTEKINUMAB-KFCE
     Dosage: FREQUENCY : MONTHLY;?
  2. STELARA [Suspect]
     Active Substance: USTEKINUMAB

REACTIONS (6)
  - Product substitution issue [None]
  - Inappropriate schedule of product administration [None]
  - Crohn^s disease [None]
  - Weight decreased [None]
  - Arthritis [None]
  - Eczema [None]
